FAERS Safety Report 6503627-6 (Version None)
Quarter: 2009Q4

REPORT INFORMATION
  Report Type: 
  Country: None (occurrence: None)
  Receive Date: 20091217
  Receipt Date: 20091217
  Transmission Date: 20100525
  Serious: Yes (Other)
  Sender: FDA-Public Use
  Company Number: BR-PFIZER INC-2009277069

PATIENT
  Age: 72 Year
  Sex: Male
  Weight: 60.5 kg

DRUGS (4)
  1. XALATAN [Suspect]
     Indication: EYE DISORDER
     Dosage: 3 UG, 1X/DAY
     Route: 047
  2. COSOPT [Concomitant]
     Dosage: UNK
  3. DIAMICRON [Concomitant]
     Indication: DIABETES MELLITUS
     Dosage: UNK
  4. SOTALOL [Concomitant]
     Indication: HEART RATE IRREGULAR
     Dosage: UNK

REACTIONS (1)
  - CATARACT [None]
